FAERS Safety Report 7462091-3 (Version None)
Quarter: 2011Q2

REPORT INFORMATION
  Report Type: 
  Country: None (occurrence: None)
  Receive Date: 20110427
  Receipt Date: 20110415
  Transmission Date: 20111010
  Serious: Yes (Death, Hospitalization)
  Sender: FDA-Public Use
  Company Number: 2009AC000518

PATIENT
  Age: 69 Year
  Sex: Male

DRUGS (25)
  1. DIGOXIN [Suspect]
     Dosage: 0.125 MG;QD;PO
     Route: 048
     Dates: start: 20001101
  2. AVANDIA [Concomitant]
  3. NEXIUM [Concomitant]
  4. METFORMIN HCL [Concomitant]
  5. FERROUS SULFATE TAB [Concomitant]
  6. LOPRESSOR [Concomitant]
  7. KLOR-CON [Concomitant]
  8. ACTOS [Concomitant]
  9. OXYBUTYNIN [Concomitant]
  10. ZOCOR [Concomitant]
  11. NITROGLYCERIN [Concomitant]
  12. LIPITOR [Concomitant]
  13. PRILOSEC [Concomitant]
  14. LISINOPRIL [Concomitant]
  15. GLUCOPHAGE [Concomitant]
  16. COUMADIN [Concomitant]
  17. LASIX [Concomitant]
  18. HYDRALAZINE HCL [Concomitant]
  19. GLIPIZIDE [Concomitant]
  20. DIGOXIN [Suspect]
     Indication: ATRIAL FIBRILLATION
     Dosage: 0.25 MG;QD;PO
     Route: 048
     Dates: start: 19980801
  21. GLYBURIDE [Concomitant]
  22. METOPROLOL SUCCINATE [Concomitant]
  23. DITROPAN [Concomitant]
  24. FLOMAX [Concomitant]
  25. MULTI-VITAMIN [Concomitant]

REACTIONS (31)
  - ATRIAL FLUTTER [None]
  - ANAEMIA OF CHRONIC DISEASE [None]
  - GASTROINTESTINAL HAEMORRHAGE [None]
  - BUNDLE BRANCH BLOCK RIGHT [None]
  - HYPERKALAEMIA [None]
  - TOXICITY TO VARIOUS AGENTS [None]
  - HYPOALDOSTERONISM [None]
  - ATRIAL FIBRILLATION [None]
  - CARDIAC FAILURE CONGESTIVE [None]
  - HIATUS HERNIA [None]
  - ACQUIRED OESOPHAGEAL WEB [None]
  - MULTIPLE INJURIES [None]
  - CAROTID ARTERY STENOSIS [None]
  - CHEST DISCOMFORT [None]
  - BRADYCARDIA [None]
  - CARDIAC MURMUR [None]
  - IRON DEFICIENCY ANAEMIA [None]
  - DEHYDRATION [None]
  - CONDUCTION DISORDER [None]
  - ASTHENIA [None]
  - DIZZINESS [None]
  - DIARRHOEA [None]
  - COLONIC POLYP [None]
  - ISCHAEMIC CARDIOMYOPATHY [None]
  - ECONOMIC PROBLEM [None]
  - DECREASED APPETITE [None]
  - CONDITION AGGRAVATED [None]
  - WEIGHT DECREASED [None]
  - GASTRITIS [None]
  - DIVERTICULUM [None]
  - RENAL FAILURE ACUTE [None]
